FAERS Safety Report 5104102-6 (Version None)
Quarter: 2006Q3

REPORT INFORMATION
  Report Type: 
  Country: None (occurrence: None)
  Receive Date: 20060913
  Receipt Date: 20060831
  Transmission Date: 20061208
  Serious: Yes (Other)
  Sender: FDA-Public Use
  Company Number: US-BOEHRINGER INGELHEIM PHARMACEUTICALS, INC.-2006-DE-04608GD

PATIENT
  Sex: Male

DRUGS (15)
  1. NEVIRAPINE [Suspect]
     Indication: HIV INFECTION
     Dates: start: 19960801
  2. PREDNISONE TAB [Suspect]
     Indication: PNEUMOCYSTIS JIROVECI PNEUMONIA
     Dates: start: 19970901
  3. ZIDOVUDINE [Suspect]
     Indication: HIV INFECTION
     Dates: start: 19890101, end: 19960801
  4. DIDANOSINE [Suspect]
     Indication: HIV INFECTION
  5. DIDANOSINE [Suspect]
     Dates: start: 20000501
  6. STAVUDINE [Suspect]
     Indication: HIV INFECTION
     Dates: start: 19960801, end: 20011001
  7. LAMIVUDINE [Suspect]
     Indication: HIV INFECTION
     Dates: start: 19960801
  8. SAQUINAVIR [Suspect]
     Indication: HIV INFECTION
     Dates: start: 19960801
  9. NELFINAVIR [Suspect]
     Indication: HIV INFECTION
     Dates: start: 19960101
  10. INDINAVIR [Suspect]
     Indication: HIV INFECTION
     Dates: start: 20000501, end: 20011001
  11. RITONAVIR [Suspect]
     Indication: HIV INFECTION
     Dates: start: 20000501, end: 20001001
  12. TENOFOVIR [Suspect]
     Indication: HIV INFECTION
     Dates: start: 20020301
  13. ABACAVIR [Suspect]
     Indication: HIV INFECTION
     Dates: start: 20020301
  14. LOPINAVIR/RITONAVIR [Suspect]
     Indication: HIV INFECTION
     Dates: start: 20020301
  15. TRIMETHOPRIM + SULFAMETHOXAZOLE [Concomitant]
     Indication: ANTIBIOTIC PROPHYLAXIS
     Dates: start: 19970901

REACTIONS (17)
  - BLOOD CHOLESTEROL INCREASED [None]
  - BODY FAT DISORDER [None]
  - DIABETES MELLITUS NON-INSULIN-DEPENDENT [None]
  - DRUG INEFFECTIVE [None]
  - DRUG TOXICITY [None]
  - FALL [None]
  - FAT ATROPHY [None]
  - FATIGUE [None]
  - HYPERLIPIDAEMIA [None]
  - HYPERTENSION [None]
  - HYPERTRIGLYCERIDAEMIA [None]
  - LIPIDS INCREASED [None]
  - LOW DENSITY LIPOPROTEIN INCREASED [None]
  - OSTEONECROSIS [None]
  - OSTEOPOROSIS [None]
  - PNEUMOCYSTIS JIROVECI PNEUMONIA [None]
  - RIB FRACTURE [None]
